FAERS Safety Report 5059307-X (Version None)
Quarter: 2006Q3

REPORT INFORMATION
  Report Type: 
  Country: None (occurrence: None)
  Receive Date: 20060724
  Receipt Date: 20060713
  Transmission Date: 20061208
  Serious: Yes (Hospitalization)
  Sender: FDA-Public Use
  Company Number: US-JNJFOC-20060702621

PATIENT
  Sex: Male
  Weight: 83 kg

DRUGS (1)
  1. REMICADE [Suspect]
     Indication: RHEUMATOID ARTHRITIS
     Route: 042

REACTIONS (4)
  - DYSPNOEA [None]
  - INFUSION RELATED REACTION [None]
  - PALLOR [None]
  - TREMOR [None]
